FAERS Safety Report 9349314 (Version 2)
Quarter: 2013Q2

REPORT INFORMATION
  Report Type: Spontaneous
  Country: FR (occurrence: FR)
  Receive Date: 20130614
  Receipt Date: 20130628
  Transmission Date: 20140414
  Serious: Yes (Hospitalization)
  Sender: FDA-Public Use
  Company Number: FR-TEVA-412411ISR

PATIENT
  Age: 83 Year
  Sex: Female

DRUGS (5)
  1. FUROSEMIDE TEVA 40MG [Suspect]
     Indication: CARDIAC FAILURE
     Dosage: 80 MILLIGRAM DAILY; 1 IN THE MORNING 1 IN THE NOON
     Route: 048
     Dates: start: 20130221, end: 20130415
  2. FUROSEMIDE TEVA 40MG [Suspect]
     Indication: ISCHAEMIC CARDIOMYOPATHY
     Dosage: 1 IN THE MORNING
     Route: 048
     Dates: start: 20130429, end: 20130608
  3. FORADIL [Concomitant]
     Indication: ASTHMA
  4. FLIXOTIDE [Concomitant]
     Indication: ASTHMA
  5. SERETIDE [Concomitant]
     Indication: ASTHMA

REACTIONS (5)
  - Pulmonary oedema [Recovered/Resolved]
  - Bronchopneumopathy [Recovered/Resolved]
  - Dyspnoea [Unknown]
  - Pyrexia [Unknown]
  - Oedema peripheral [Recovered/Resolved]
